FAERS Safety Report 22244397 (Version 3)
Quarter: 2023Q2

REPORT INFORMATION
  Report Type: Other
  Country: CA (occurrence: None)
  Receive Date: 20230424
  Receipt Date: 20230521
  Transmission Date: 20230721
  Serious: Yes (Hospitalization, Other)
  Sender: FDA-Public Use
  Company Number: CA-ROCHE-2571987

PATIENT
  Age: 22 Year
  Sex: Male

DRUGS (18)
  1. OCREVUS [Suspect]
     Active Substance: OCRELIZUMAB
     Indication: Relapsing-remitting multiple sclerosis
     Dosage: 300 MG AT DAY 0, 14 THEN 600 MG Q6M
     Route: 042
     Dates: start: 20200313
  2. CLONAZEPAM [Suspect]
     Active Substance: CLONAZEPAM
     Indication: Panic attack
     Route: 065
  3. PRAMIPEXOLE [Suspect]
     Active Substance: PRAMIPEXOLE
     Indication: Product used for unknown indication
     Route: 065
     Dates: start: 20201028
  4. PREDNISONE [Suspect]
     Active Substance: PREDNISONE
     Indication: Product used for unknown indication
     Route: 065
  5. LYRICA [Suspect]
     Active Substance: PREGABALIN
     Indication: Product used for unknown indication
     Route: 065
  6. VYVANSE [Concomitant]
     Active Substance: LISDEXAMFETAMINE DIMESYLATE
  7. PREGABALIN [Concomitant]
     Active Substance: PREGABALIN
  8. GRAVOL [Concomitant]
     Active Substance: DIMENHYDRINATE
  9. VITAMIN B6 [Concomitant]
     Active Substance: PYRIDOXINE HYDROCHLORIDE
  10. VITAMIN C [Concomitant]
     Active Substance: ASCORBIC ACID
  11. PREDNISONE [Concomitant]
     Active Substance: PREDNISONE
  12. TRAMADOL [Concomitant]
     Active Substance: TRAMADOL
  13. BACLOFEN [Concomitant]
     Active Substance: BACLOFEN
  14. HYDROMORPHONE [Concomitant]
     Active Substance: HYDROMORPHONE
  15. PANTOPRAZOLE [Concomitant]
     Active Substance: PANTOPRAZOLE
  16. DIAZEPAM [Concomitant]
     Active Substance: DIAZEPAM
  17. ADDERALL [Concomitant]
     Active Substance: AMPHETAMINE ASPARTATE\AMPHETAMINE SULFATE\DEXTROAMPHETAMINE SACCHARATE\DEXTROAMPHETAMINE SULFATE
  18. ARTHROTEC [Concomitant]
     Active Substance: DICLOFENAC SODIUM\MISOPROSTOL

REACTIONS (50)
  - Blindness [Unknown]
  - Intentional self-injury [Unknown]
  - Seizure [Unknown]
  - Toxicity to various agents [Recovered/Resolved]
  - Disability [Recovered/Resolved]
  - Infusion related reaction [Recovered/Resolved]
  - Sleep disorder [Not Recovered/Not Resolved]
  - Fatigue [Not Recovered/Not Resolved]
  - Diplopia [Not Recovered/Not Resolved]
  - Skin laceration [Recovering/Resolving]
  - Tinea pedis [Unknown]
  - Brain fog [Unknown]
  - Depression [Unknown]
  - Panic attack [Unknown]
  - Hypoaesthesia [Unknown]
  - Nasopharyngitis [Recovered/Resolved]
  - Visual impairment [Recovered/Resolved]
  - Pain [Not Recovered/Not Resolved]
  - Anxiety [Unknown]
  - Acne [Not Recovered/Not Resolved]
  - Muscle spasms [Not Recovered/Not Resolved]
  - Restless legs syndrome [Not Recovered/Not Resolved]
  - Agitation [Unknown]
  - Aggression [Unknown]
  - Neuralgia [Unknown]
  - Sedation [Unknown]
  - Dizziness [Unknown]
  - Dry mouth [Unknown]
  - Malaise [Unknown]
  - Nausea [Unknown]
  - Constipation [Unknown]
  - Pain in extremity [Not Recovered/Not Resolved]
  - Back pain [Not Recovered/Not Resolved]
  - Muscle spasticity [Not Recovered/Not Resolved]
  - Skin abrasion [Not Recovered/Not Resolved]
  - Penis injury [Recovering/Resolving]
  - Localised infection [Recovered/Resolved]
  - Dehydration [Unknown]
  - Attention deficit hyperactivity disorder [Unknown]
  - Post-traumatic stress disorder [Unknown]
  - Drug hypersensitivity [Unknown]
  - Cough [Unknown]
  - Tremor [Unknown]
  - Gastrointestinal disorder [Not Recovered/Not Resolved]
  - Urinary tract disorder [Not Recovered/Not Resolved]
  - Haematochezia [Unknown]
  - Pilonidal disease [Recovered/Resolved]
  - Neck pain [Not Recovered/Not Resolved]
  - Depressed mood [Unknown]
  - Asthenia [Unknown]

NARRATIVE: CASE EVENT DATE: 20200313
